FAERS Safety Report 10566588 (Version 2)
Quarter: 2015Q2

REPORT INFORMATION
  Report Type: Spontaneous
  Country: US (occurrence: US)
  Receive Date: 20141105
  Receipt Date: 20150406
  Transmission Date: 20150821
  Serious: Yes (Death, Hospitalization, Other)
  Sender: FDA-Public Use
  Company Number: US-PFIZER INC-2014301036

PATIENT
  Age: 66 Year
  Sex: Male
  Weight: 95 kg

DRUGS (5)
  1. TESTOSTERONE CIPIONATE [Suspect]
     Active Substance: TESTOSTERONE
     Indication: HORMONE REPLACEMENT THERAPY
     Dosage: UNK UNK, EVERY 3 WEEKS
     Route: 030
     Dates: start: 200608, end: 200610
  2. DEPO-TESTOSTERONE [Suspect]
     Active Substance: TESTOSTERONE CYPIONATE
     Indication: HORMONE REPLACEMENT THERAPY
  3. DEPO-TESTOSTERONE [Suspect]
     Active Substance: TESTOSTERONE CYPIONATE
     Indication: LIBIDO DECREASED
  4. TESTOSTERONE CIPIONATE [Suspect]
     Active Substance: TESTOSTERONE
     Indication: LIBIDO DECREASED
  5. DEPO-TESTOSTERONE [Suspect]
     Active Substance: TESTOSTERONE CYPIONATE
     Indication: BLOOD TESTOSTERONE DECREASED
     Dosage: UNK, EVERY 3 WEEKS
     Route: 030
     Dates: start: 200605

REACTIONS (11)
  - Hypertension [Not Recovered/Not Resolved]
  - Myocardial infarction [Fatal]
  - Dyspnoea [Not Recovered/Not Resolved]
  - Chest discomfort [Unknown]
  - Chest discomfort [Unknown]
  - Bundle branch block left [Unknown]
  - Angina unstable [Unknown]
  - Arteriosclerosis coronary artery [Unknown]
  - Cardiac disorder [Not Recovered/Not Resolved]
  - Cerebrovascular disorder [Not Recovered/Not Resolved]
  - Chest pain [Not Recovered/Not Resolved]

NARRATIVE: CASE EVENT DATE: 20070915
